FAERS Safety Report 8756828 (Version 2)
Quarter: 2012Q4

REPORT INFORMATION
  Report Type: Spontaneous
  Country: MX (occurrence: None)
  Receive Date: 20120813
  Receipt Date: 20120831
  Transmission Date: 20130627
  Serious: Yes (Other)
  Sender: FDA-Public Use
  Company Number: 1207MEX010928

PATIENT
  Age: 5 Year
  Sex: Male

DRUGS (1)
  1. CEDAX [Suspect]
     Route: 048

REACTIONS (3)
  - Rash [None]
  - Urticaria [None]
  - Poisoning [None]
